FAERS Safety Report 18412678 (Version 2)
Quarter: 2020Q4

REPORT INFORMATION
  Report Type: Spontaneous
  Country: US (occurrence: US)
  Receive Date: 20201021
  Receipt Date: 20201109
  Transmission Date: 20210114
  Serious: No
  Sender: FDA-Public Use
  Company Number: US-PFIZER INC-2020405107

PATIENT
  Age: 76 Year
  Sex: Female
  Weight: 79.83 kg

DRUGS (1)
  1. AROMASIN [Suspect]
     Active Substance: EXEMESTANE
     Indication: BREAST CANCER
     Dosage: 25 MG, 1X/DAY
     Route: 048

REACTIONS (2)
  - Cognitive disorder [Unknown]
  - Product dispensing error [Unknown]

NARRATIVE: CASE EVENT DATE: 202010
